FAERS Safety Report 8041827-7 (Version None)
Quarter: 2012Q1

REPORT INFORMATION
  Report Type: 
  Country: None (occurrence: None)
  Receive Date: 20120112
  Receipt Date: 20120110
  Transmission Date: 20120608
  Serious: Yes (Hospitalization, Other)
  Sender: FDA-Public Use
  Company Number: JP-PFIZER INC-2011238191

PATIENT
  Age: 60 Year
  Sex: Male

DRUGS (13)
  1. AMIODARONE HYDROCHLORIDE [Concomitant]
     Dosage: 100 MG/DAY
     Route: 048
  2. ALDACTONE [Suspect]
     Indication: CARDIAC FAILURE
     Dosage: 25 MG, 2X/DAY
     Route: 048
     Dates: start: 20030401, end: 20060801
  3. ALDACTONE [Suspect]
     Indication: HYPOKALAEMIA
     Dosage: 25 MG, 1X/DAY
     Route: 048
     Dates: end: 20110701
  4. DIART [Concomitant]
     Dosage: 120 MG/DAY
     Route: 048
  5. DIOVAN [Concomitant]
     Dosage: 20 MG/DAY
     Route: 048
  6. TRICHLORMETHIAZIDE [Concomitant]
     Dosage: 1 MG/DAY
     Route: 048
  7. SIGMART [Concomitant]
     Dosage: 15 MG/DAY
     Route: 048
  8. LIVALO [Concomitant]
     Dosage: 1 MG/DAY
     Route: 048
  9. FERROUS CITRATE [Concomitant]
     Dosage: 50 MG, 2X/DAY
     Route: 048
  10. CARVEDILOL [Concomitant]
     Dosage: 2.5 MG/DAY
     Route: 048
  11. ASPIRIN [Concomitant]
     Dosage: 100 MG/DAY
     Route: 048
  12. LANSOPRAZOLE [Concomitant]
     Dosage: 15 MG/DAY
     Route: 048
  13. WARFARIN [Concomitant]
     Dosage: 2.5 MG/DAY
     Route: 048

REACTIONS (2)
  - CARDIAC FAILURE CONGESTIVE [None]
  - GYNAECOMASTIA [None]
